FAERS Safety Report 7403489-9 (Version None)
Quarter: 2011Q2

REPORT INFORMATION
  Report Type: 
  Country: None (occurrence: None)
  Receive Date: 20110408
  Receipt Date: 20110401
  Transmission Date: 20111010
  Serious: Yes (Other)
  Sender: FDA-Public Use
  Company Number: US-SANOFI-AVENTIS-2011SA020764

PATIENT
  Age: 82 Year
  Sex: Female

DRUGS (2)
  1. HUMALOG [Suspect]
  2. LANTUS [Suspect]
     Indication: TYPE 2 DIABETES MELLITUS
     Dosage: 44UNITS INT EH AM AND 44 UNITS IN PM DOSE:44 UNIT(S)
     Route: 058

REACTIONS (1)
  - EYE LASER SURGERY [None]
